FAERS Safety Report 4341101-6 (Version None)
Quarter: 2004Q2

REPORT INFORMATION
  Report Type: 
  Country: None (occurrence: None)
  Receive Date: 20040419
  Receipt Date: 20040405
  Transmission Date: 20050107
  Serious: Yes (Other)
  Sender: FDA-Public Use
  Company Number: GR-ROCHE-364560

PATIENT
  Sex: Female
  Weight: 65 kg

DRUGS (2)
  1. XENICAL [Suspect]
     Route: 048
     Dates: start: 20040220, end: 20040305
  2. ANTI-INFLAMMATORY MEDICATIONS NOS [Concomitant]

REACTIONS (3)
  - EYE DISORDER [None]
  - INTRAOCULAR PRESSURE INCREASED [None]
  - LACRIMATION INCREASED [None]
